FAERS Safety Report 4907962-4 (Version None)
Quarter: 2006Q1

REPORT INFORMATION
  Report Type: 
  Country: None (occurrence: None)
  Receive Date: 20060208
  Receipt Date: 20060124
  Transmission Date: 20060701
  Serious: Yes (Death, Hospitalization)
  Sender: FDA-Public Use
  Company Number: 2006-US-00588

PATIENT
  Age: 55 Year
  Sex: Female

DRUGS (2)
  1. CLARITHROMYCIN [Suspect]
     Indication: PNEUMONIA
     Dosage: 250 MG, BID
  2. COLCHICINE [Suspect]
     Indication: GOUT
     Dosage: 0.5 MG TID

REACTIONS (10)
  - ALANINE AMINOTRANSFERASE INCREASED [None]
  - ASPARTATE AMINOTRANSFERASE INCREASED [None]
  - BONE MARROW FAILURE [None]
  - CONFUSIONAL STATE [None]
  - CREPITATIONS [None]
  - DIARRHOEA [None]
  - FEBRILE NEUTROPENIA [None]
  - GOUT [None]
  - PNEUMONIA [None]
  - RENAL FAILURE CHRONIC [None]
